FAERS Safety Report 19061248 (Version 5)
Quarter: 2021Q2

REPORT INFORMATION
  Report Type: Report from Study
  Country: US (occurrence: US)
  Receive Date: 20210326
  Receipt Date: 20210627
  Transmission Date: 20210717
  Serious: Yes (Other)
  Sender: FDA-Public Use
  Company Number: NVSC2021US065778

PATIENT
  Sex: Female

DRUGS (4)
  1. PIQRAY [Suspect]
     Active Substance: ALPELISIB
     Dosage: 150 MG, QD
     Route: 048
  2. PIQRAY [Suspect]
     Active Substance: ALPELISIB
     Indication: BREAST CANCER
     Dosage: 300 MG, QD (FOR 7 DAYS)
     Route: 048
  3. METFORMIN [Suspect]
     Active Substance: METFORMIN HYDROCHLORIDE
     Indication: HYPERGLYCAEMIA
     Dosage: UNK
     Route: 065
  4. PIQRAY [Suspect]
     Active Substance: ALPELISIB
     Dosage: 200 MG, QD
     Route: 048

REACTIONS (4)
  - Taste disorder [Not Recovered/Not Resolved]
  - Hyperglycaemia [Recovering/Resolving]
  - Blood glucose decreased [Recovering/Resolving]
  - Joint swelling [Not Recovered/Not Resolved]
